FAERS Safety Report 21218774 (Version 4)
Quarter: 2022Q4

REPORT INFORMATION
  Report Type: Spontaneous
  Country: US (occurrence: US)
  Receive Date: 20220816
  Receipt Date: 20221207
  Transmission Date: 20230113
  Serious: Yes (Other)
  Sender: FDA-Public Use
  Company Number: US-KARYOPHARM THERAPEUTICS, INC.-2022KPT000916

PATIENT

DRUGS (9)
  1. XPOVIO [Suspect]
     Active Substance: SELINEXOR
     Indication: Plasma cell myeloma
     Dosage: 100 MG, WEEKLY
     Route: 048
     Dates: start: 20220510, end: 202207
  2. XPOVIO [Suspect]
     Active Substance: SELINEXOR
     Dosage: 100 MG, WEEKLY
     Route: 048
     Dates: start: 202207
  3. ZOFRAN [Concomitant]
     Active Substance: ONDANSETRON HYDROCHLORIDE
     Dosage: UNK, EVERY MORNING
  4. ZOFRAN [Concomitant]
     Active Substance: ONDANSETRON HYDROCHLORIDE
     Dosage: UNK, SOMETIMES THURSDAY AND FRIDAY NIGHTS
  5. MIDODRINE [Concomitant]
     Active Substance: MIDODRINE
     Dosage: 10 UNK
  6. FLUDROCORTISONE [Concomitant]
     Active Substance: FLUDROCORTISONE
  7. VENLAFAXINE [Concomitant]
     Active Substance: VENLAFAXINE HYDROCHLORIDE
     Indication: Depression
  8. VENLAFAXINE [Concomitant]
     Active Substance: VENLAFAXINE HYDROCHLORIDE
     Indication: Anxiety
  9. DEXAMETHASONE [Concomitant]
     Active Substance: DEXAMETHASONE
     Dosage: 20 MG, AT NIGHT BEFORE BED

REACTIONS (20)
  - Lower limb fracture [Unknown]
  - Clavicle fracture [Unknown]
  - Blood pressure orthostatic decreased [Not Recovered/Not Resolved]
  - Abdominal discomfort [Recovering/Resolving]
  - Fall [Unknown]
  - Anxiety [Recovering/Resolving]
  - Neck pain [Recovered/Resolved]
  - Plasma cell myeloma [Unknown]
  - Depression [Unknown]
  - Nausea [Recovering/Resolving]
  - Syncope [Unknown]
  - Vision blurred [Unknown]
  - Vomiting [Unknown]
  - Fatigue [Not Recovered/Not Resolved]
  - Decreased appetite [Unknown]
  - Constipation [Unknown]
  - Dizziness [Not Recovered/Not Resolved]
  - Dehydration [Unknown]
  - Abdominal pain [Unknown]
  - Product dose omission issue [Unknown]

NARRATIVE: CASE EVENT DATE: 20220101
